FAERS Safety Report 22804276 (Version 2)
Quarter: 2024Q2

REPORT INFORMATION
  Report Type: Spontaneous
  Country: US (occurrence: US)
  Receive Date: 20230809
  Receipt Date: 20240417
  Transmission Date: 20240716
  Serious: Yes (Hospitalization)
  Sender: FDA-Public Use
  Company Number: US-PFIZER INC-202300271456

PATIENT
  Age: 61 Year
  Sex: Female

DRUGS (6)
  1. IBRANCE [Suspect]
     Active Substance: PALBOCICLIB
     Dosage: 75 MG, CYCLIC (TAKE 1 TABLET ORAL DAILY FOR 21 DAYS ON, THEN NONE FOR 7 DAYS)
     Route: 048
     Dates: start: 201908, end: 20240321
  2. IBRANCE [Suspect]
     Active Substance: PALBOCICLIB
     Dosage: ONE 75MG TABLET ORALLY DAILY, 3 WEEKS ON , ONE WEEK OFF
     Route: 048
     Dates: start: 20240404
  3. ESCITALOPRAM [Concomitant]
     Active Substance: ESCITALOPRAM OXALATE
  4. LETROZOLE [Concomitant]
     Active Substance: LETROZOLE
  5. MOUNJARO [Concomitant]
     Active Substance: TIRZEPATIDE
  6. ZOMETA [Concomitant]
     Active Substance: ZOLEDRONIC ACID

REACTIONS (2)
  - Illness [Not Recovered/Not Resolved]
  - Neoplasm progression [Not Recovered/Not Resolved]

NARRATIVE: CASE EVENT DATE: 20240321
